FAERS Safety Report 13949300 (Version 1)
Quarter: 2017Q3

REPORT INFORMATION
  Report Type: Spontaneous
  Country: US (occurrence: US)
  Receive Date: 20170908
  Receipt Date: 20170908
  Transmission Date: 20171128
  Serious: No
  Sender: FDA-Public Use
  Company Number: US-JAZZ-2017-US-009921

PATIENT
  Sex: Female

DRUGS (19)
  1. OMEPRAZOLE. [Concomitant]
     Active Substance: OMEPRAZOLE
  2. ZYRTEC [Concomitant]
     Active Substance: CETIRIZINE HYDROCHLORIDE
  3. SUPER GREENS [Concomitant]
  4. SYMBICORT [Concomitant]
     Active Substance: BUDESONIDE\FORMOTEROL FUMARATE DIHYDRATE
  5. ALLERGY                            /00000402/ [Concomitant]
  6. CLOBETASOL [Concomitant]
     Active Substance: CLOBETASOL
  7. PROVIGIL [Suspect]
     Active Substance: MODAFINIL
     Indication: PRODUCT USED FOR UNKNOWN INDICATION
     Dosage: UNK
     Dates: start: 201510
  8. GUAIFENESIN. [Concomitant]
     Active Substance: GUAIFENESIN
  9. LORATADINE. [Concomitant]
     Active Substance: LORATADINE
  10. VITAMIN B12 [Concomitant]
     Active Substance: CYANOCOBALAMIN
  11. VITAMIN C [Concomitant]
     Active Substance: ASCORBIC ACID
  12. XYREM [Suspect]
     Active Substance: SODIUM OXYBATE
     Indication: CATAPLEXY
     Dosage: DOSE ADJUSTMENT
     Route: 048
     Dates: start: 201510, end: 201511
  13. ADVIL MIGRAINE [Concomitant]
     Active Substance: IBUPROFEN
  14. IBUPROFEN                          /00109205/ [Concomitant]
     Active Substance: IBUPROFEN
  15. VITAMIN B COMPLEX [Concomitant]
     Active Substance: CYANOCOBALAMIN\DEXPANTHENOL\NIACINAMIDE\PYRIDOXINE HYDROCHLORIDE\RIBOFLAVIN 5^-PHOSPHATE SODIUM\THIAMINE HYDROCHLORIDE\VITAMIN B COMPLEX
  16. VITAMIN D                          /00107901/ [Concomitant]
     Active Substance: ERGOCALCIFEROL
  17. XYREM [Suspect]
     Active Substance: SODIUM OXYBATE
     Indication: NARCOLEPSY
     Dosage: 2.25G, BID
     Route: 048
     Dates: start: 201510, end: 201510
  18. XYREM [Suspect]
     Active Substance: SODIUM OXYBATE
     Dosage: 4.5G, BID
     Route: 048
     Dates: start: 201511
  19. PROAIR HFA [Concomitant]
     Active Substance: ALBUTEROL SULFATE

REACTIONS (5)
  - Blood pressure fluctuation [Recovering/Resolving]
  - Drug ineffective [Not Recovered/Not Resolved]
  - Weight decreased [Unknown]
  - Fluid retention [Not Recovered/Not Resolved]
  - Oedema [Recovering/Resolving]
